FAERS Safety Report 7454661-3 (Version None)
Quarter: 2011Q2

REPORT INFORMATION
  Report Type: 
  Country: None (occurrence: None)
  Receive Date: 20110503
  Receipt Date: 20100419
  Transmission Date: 20111010
  Serious: Yes (Hospitalization)
  Sender: FDA-Public Use
  Company Number: US-PFIZER INC-2010049646

PATIENT
  Age: 69 Year
  Sex: Female

DRUGS (2)
  1. PROVERA [Suspect]
     Indication: MENOPAUSAL SYMPTOMS
     Dosage: UNK
     Dates: start: 19930101, end: 19940101
  2. PREMARIN [Suspect]
     Indication: MENOPAUSAL SYMPTOMS
     Dosage: UNK
     Dates: start: 19930101, end: 19940101

REACTIONS (1)
  - DEEP VEIN THROMBOSIS [None]
